FAERS Safety Report 10340124 (Version 7)
Quarter: 2015Q2

REPORT INFORMATION
  Report Type: Report from Study
  Country: US (occurrence: US)
  Receive Date: 20140724
  Receipt Date: 20150626
  Transmission Date: 20150821
  Serious: Yes (Hospitalization, Disabling, Other)
  Sender: FDA-Public Use
  Company Number: US-SANOFI-AVENTIS-2013SA079511

PATIENT
  Age: 51 Year
  Sex: Female
  Weight: 70 kg

DRUGS (12)
  1. AUBAGIO [Interacting]
     Active Substance: TERIFLUNOMIDE
     Indication: MULTIPLE SCLEROSIS
     Route: 048
     Dates: start: 20130716
  2. WARFARIN [Interacting]
     Active Substance: WARFARIN
     Route: 065
     Dates: start: 2014
  3. SYMBICORT [Concomitant]
     Active Substance: BUDESONIDE\FORMOTEROL FUMARATE DIHYDRATE
  4. PRILOSEC [Concomitant]
     Active Substance: OMEPRAZOLE MAGNESIUM
     Indication: GASTROOESOPHAGEAL REFLUX DISEASE
     Route: 065
     Dates: start: 2009
  5. AUBAGIO [Interacting]
     Active Substance: TERIFLUNOMIDE
     Indication: MULTIPLE SCLEROSIS
     Route: 048
     Dates: start: 20130716
  6. MAXALT /NET/ [Concomitant]
     Indication: MIGRAINE
     Route: 065
     Dates: start: 2009
  7. FLONASE [Concomitant]
     Active Substance: FLUTICASONE PROPIONATE
     Indication: SINUSITIS
     Route: 065
     Dates: start: 2009
  8. ACTHAR [Suspect]
     Active Substance: CORTICOTROPIN
     Indication: PRODUCT USED FOR UNKNOWN INDICATION
     Dosage: DOSE:5 MILLIGRAM(S)/MILLILITRE
     Route: 065
     Dates: start: 20131017
  9. COUMADIN [Concomitant]
     Active Substance: WARFARIN SODIUM
  10. ALBUTEROL. [Concomitant]
     Active Substance: ALBUTEROL
     Indication: ASTHMA
     Route: 065
     Dates: start: 2000
  11. TYSABRI [Concomitant]
     Active Substance: NATALIZUMAB
     Dates: start: 20141016, end: 20141016
  12. AUBAGIO [Interacting]
     Active Substance: TERIFLUNOMIDE
     Indication: MULTIPLE SCLEROSIS
     Route: 048
     Dates: start: 20130726

REACTIONS (45)
  - Pulmonary embolism [Unknown]
  - Cellulitis [Unknown]
  - Vomiting [Unknown]
  - JC virus test positive [Unknown]
  - Impaired healing [Unknown]
  - Blood cholesterol increased [Unknown]
  - Drug dose omission [Unknown]
  - Disability [Not Recovered/Not Resolved]
  - Hemiparesis [Unknown]
  - Weight increased [Not Recovered/Not Resolved]
  - Chest discomfort [Not Recovered/Not Resolved]
  - Flank pain [Unknown]
  - Blood potassium abnormal [Unknown]
  - Malaise [Unknown]
  - Sepsis [Unknown]
  - Multiple sclerosis relapse [Not Recovered/Not Resolved]
  - Oedema peripheral [Not Recovered/Not Resolved]
  - Musculoskeletal stiffness [Not Recovered/Not Resolved]
  - Drug interaction [Unknown]
  - Weight decreased [Recovered/Resolved]
  - Staphylococcal infection [Unknown]
  - Deep vein thrombosis [Unknown]
  - Haemoptysis [Unknown]
  - Pain [Unknown]
  - Urinary tract infection [Not Recovered/Not Resolved]
  - Asthenia [Unknown]
  - Vertigo [Unknown]
  - Pain [Not Recovered/Not Resolved]
  - International normalised ratio abnormal [Recovering/Resolving]
  - Walking disability [Unknown]
  - Condition aggravated [Unknown]
  - Muscle spasms [Unknown]
  - Hepatic enzyme increased [Unknown]
  - Paraesthesia [Not Recovered/Not Resolved]
  - Hand fracture [Not Recovered/Not Resolved]
  - Abdominal discomfort [Not Recovered/Not Resolved]
  - Chest pain [Unknown]
  - Pyrexia [Unknown]
  - Immunodeficiency [Unknown]
  - Nuclear magnetic resonance imaging abnormal [Unknown]
  - Gait disturbance [Unknown]
  - Sinusitis [Not Recovered/Not Resolved]
  - Fall [Unknown]
  - Alopecia [Not Recovered/Not Resolved]
  - Joint injury [Unknown]

NARRATIVE: CASE EVENT DATE: 201307
